FAERS Safety Report 8693030 (Version 2)
Quarter: 2013Q4

REPORT INFORMATION
  Report Type: Spontaneous
  Country: JP (occurrence: JP)
  Receive Date: 20120730
  Receipt Date: 20131101
  Transmission Date: 20140711
  Serious: Yes (Life-Threatening, Other)
  Sender: FDA-Public Use
  Company Number: JP-009507513-1207JPN010150

PATIENT
  Sex: Male
  Weight: 95 kg

DRUGS (5)
  1. ESLAX [Suspect]
     Route: 042
     Dates: start: 20120712, end: 20120712
  2. PROPOFOL [Suspect]
     Indication: LIGHT ANAESTHESIA
     Route: 051
     Dates: start: 20120712, end: 20120712
  3. ULTIVA [Suspect]
     Indication: ANALGESIC THERAPY
     Dosage: CONTINUOUS
     Route: 042
     Dates: start: 20120712, end: 20120712
  4. ULTIVA [Suspect]
     Indication: GENERAL ANAESTHESIA
  5. ESLAX INTRAVENOUS 50MG/5.0ML [Suspect]
     Route: 042
     Dates: start: 20120712, end: 20120712

REACTIONS (7)
  - Anaphylactic reaction [Recovered/Resolved]
  - Piloerection [Recovered/Resolved]
  - Blood pressure decreased [Recovered/Resolved]
  - Anaphylactic shock [Recovered/Resolved]
  - Generalised erythema [Recovered/Resolved]
  - Oxygen saturation decreased [Recovered/Resolved]
  - Dyspnoea [Recovered/Resolved]
